FAERS Safety Report 4918787-8 (Version None)
Quarter: 2006Q1

REPORT INFORMATION
  Report Type: 
  Country: None (occurrence: None)
  Receive Date: 20060222
  Receipt Date: 20060118
  Transmission Date: 20060701
  Serious: Yes (Other)
  Sender: FDA-Public Use
  Company Number: PHFR2006GB00890

PATIENT

DRUGS (1)
  1. DICLOFENAC [Suspect]

REACTIONS (3)
  - HAND AMPUTATION [None]
  - POST PROCEDURAL HAEMORRHAGE [None]
  - SURGERY [None]
